FAERS Safety Report 7186502-6 (Version None)
Quarter: 2010Q4

REPORT INFORMATION
  Report Type: 
  Country: None (occurrence: None)
  Receive Date: 20101222
  Receipt Date: 20100622
  Transmission Date: 20110411
  Serious: No
  Sender: FDA-Public Use
  Company Number: US-AMGEN-KDL419941

PATIENT

DRUGS (9)
  1. ENBREL [Suspect]
     Indication: PRODUCT USED FOR UNKNOWN INDICATION
     Dosage: 50 MG, QWK
     Route: 058
  2. HYDROXYCHLOROQUINE SULFATE [Concomitant]
     Dosage: 200 MG, UNK
  3. MELOXICAM [Concomitant]
     Dosage: 7.5 MG, UNK
  4. PATANOL [Concomitant]
     Dosage: .1 %, UNK
  5. OMEPRAZOLE [Concomitant]
     Dosage: 10 MG, UNK
  6. RANITIDINE [Concomitant]
     Dosage: 150 MG, UNK
  7. FLUTICASONE PROPIONATE [Concomitant]
     Dosage: .05 %, UNK
  8. LORABID [Concomitant]
     Dosage: 200 MG, UNK
  9. LORATADINE [Concomitant]
     Dosage: 10 MG, UNK

REACTIONS (1)
  - DYSURIA [None]
